FAERS Safety Report 8619121 (Version 3)
Quarter: 2012Q4

REPORT INFORMATION
  Report Type: 
  Country: JP (occurrence: JP)
  Receive Date: 20120618
  Receipt Date: 20121211
  Transmission Date: 20130627
  Serious: Yes (Death, Hospitalization)
  Sender: FDA-Public Use
  Company Number: JP-ASTRAZENECA-2012SE39225

PATIENT
  Age: 58 Year
  Sex: Female

DRUGS (3)
  1. FASLODEX [Suspect]
     Indication: BREAST CANCER RECURRENT
     Dosage: Dose unknown
     Route: 030
     Dates: start: 20120601
  2. FEMARA [Concomitant]
  3. ABRAXANE [Concomitant]

REACTIONS (6)
  - Ascites [Unknown]
  - Disease progression [Fatal]
  - Decreased appetite [Unknown]
  - Vomiting [Unknown]
  - Hot flush [Unknown]
  - Asthenia [Unknown]
